FAERS Safety Report 12681026 (Version 5)
Quarter: 2016Q4

REPORT INFORMATION
  Report Type: Report from Study
  Country: CA (occurrence: CA)
  Receive Date: 20160824
  Receipt Date: 20161128
  Transmission Date: 20170207
  Serious: Yes (Other)
  Sender: FDA-Public Use
  Company Number: CA-JNJFOC-20151205747

PATIENT
  Age: 30 Year
  Sex: Male
  Weight: 79 kg

DRUGS (7)
  1. FLAGYL [Concomitant]
     Active Substance: METRONIDAZOLE\METRONIDAZOLE HYDROCHLORIDE
     Route: 065
  2. REMICADE [Suspect]
     Active Substance: INFLIXIMAB
     Indication: CROHN^S DISEASE
     Dosage: DOSE NUMBER 34
     Route: 042
     Dates: start: 20160817
  3. REMICADE [Suspect]
     Active Substance: INFLIXIMAB
     Indication: CROHN^S DISEASE
     Dosage: RENEWABLE
     Route: 042
     Dates: start: 20101201, end: 201510
  4. REMICADE [Suspect]
     Active Substance: INFLIXIMAB
     Indication: CROHN^S DISEASE
     Dosage: 3RD RE-INDUCTION PHASE: 0, 2 AND 6 WEEK
     Route: 042
     Dates: start: 20160926
  5. REMICADE [Suspect]
     Active Substance: INFLIXIMAB
     Indication: CROHN^S DISEASE
     Dosage: 35TH INFUSION
     Route: 042
     Dates: start: 20160829
  6. REMICADE [Suspect]
     Active Substance: INFLIXIMAB
     Indication: CROHN^S DISEASE
     Dosage: 37TH INFUSION
     Route: 042
     Dates: start: 20161121
  7. CIPRO [Concomitant]
     Active Substance: CIPROFLOXACIN HYDROCHLORIDE
     Route: 065

REACTIONS (8)
  - Abdominal pain [Recovering/Resolving]
  - General physical health deterioration [Unknown]
  - Drug ineffective [Unknown]
  - Abscess [Unknown]
  - Constipation [Unknown]
  - Haematochezia [Unknown]
  - Fistula [Not Recovered/Not Resolved]
  - Fatigue [Unknown]

NARRATIVE: CASE EVENT DATE: 2015
